FAERS Safety Report 11013763 (Version 2)
Quarter: 2015Q2

REPORT INFORMATION
  Report Type: Spontaneous
  Country: US (occurrence: US)
  Receive Date: 20150412
  Receipt Date: 20150526
  Transmission Date: 20150821
  Serious: No
  Sender: FDA-Public Use
  Company Number: US-JNJFOC-20130509575

PATIENT
  Age: 61 Year
  Sex: Male
  Weight: 77.11 kg

DRUGS (2)
  1. ANTIBIOTICS, NOS [Concomitant]
     Indication: LYME DISEASE
     Route: 065
     Dates: start: 2013
  2. PANCREAZE [Suspect]
     Active Substance: PANCRELIPASE
     Indication: DYSPEPSIA
     Route: 048
     Dates: start: 20130514

REACTIONS (2)
  - Incorrect product storage [Recovered/Resolved]
  - Drug dose omission [Not Recovered/Not Resolved]

NARRATIVE: CASE EVENT DATE: 20130514
